FAERS Safety Report 12541721 (Version 2)
Quarter: 2016Q3

REPORT INFORMATION
  Report Type: Report from Study
  Country: AU (occurrence: AU)
  Receive Date: 20160708
  Receipt Date: 20160712
  Transmission Date: 20161109
  Serious: Yes (Death, Other)
  Sender: FDA-Public Use
  Company Number: AU-009507513-1607AUS002541

PATIENT
  Age: 45 Year
  Sex: Male

DRUGS (1)
  1. PEMBROLIZUMAB. [Suspect]
     Active Substance: PEMBROLIZUMAB
     Indication: HEAD AND NECK CANCER
     Dosage: UNK
     Dates: start: 2016

REACTIONS (1)
  - Death [Fatal]

NARRATIVE: CASE EVENT DATE: 2016
